FAERS Safety Report 5717640-X (Version None)
Quarter: 2008Q2

REPORT INFORMATION
  Report Type: 
  Country: None (occurrence: None)
  Receive Date: 20080425
  Receipt Date: 20080421
  Transmission Date: 20081010
  Serious: Yes (Hospitalization, Other)
  Sender: FDA-Public Use
  Company Number: US-AVENTIS-200811787US

PATIENT
  Sex: Male
  Weight: 88.45 kg

DRUGS (10)
  1. LANTUS [Suspect]
     Route: 058
  2. LANTUS [Suspect]
     Route: 058
  3. LANTUS [Suspect]
     Route: 058
  4. GLUCOPHAGE [Concomitant]
  5. HYTRIN [Concomitant]
  6. LIPITOR [Concomitant]
  7. MULTI-VITAMINS [Concomitant]
     Dosage: DOSE: UNK
  8. ASPIRIN [Concomitant]
     Route: 048
  9. ASCORBIC ACID [Concomitant]
     Dosage: DOSE: UNK
  10. FISH OIL [Concomitant]
     Dosage: DOSE: UNK

REACTIONS (4)
  - BLOOD GLUCOSE INCREASED [None]
  - FALL [None]
  - FRACTURE [None]
  - HYPOGLYCAEMIC UNCONSCIOUSNESS [None]
